FAERS Safety Report 7875426-4 (Version None)
Quarter: 2011Q4

REPORT INFORMATION
  Report Type: 
  Country: None (occurrence: None)
  Receive Date: 20111031
  Receipt Date: 20111019
  Transmission Date: 20120403
  Serious: Yes (Other)
  Sender: FDA-Public Use
  Company Number: PHHY2011CA36303

PATIENT
  Sex: Female

DRUGS (1)
  1. SANDOSTATIN LAR [Suspect]
     Indication: CARCINOID TUMOUR
     Dosage: 40 MG, EVERY FOUR WEEKS
     Route: 030
     Dates: start: 20100106

REACTIONS (3)
  - DYSPNOEA [None]
  - ASTHENIA [None]
  - CONSTIPATION [None]
